FAERS Safety Report 7235657-3 (Version None)
Quarter: 2011Q1

REPORT INFORMATION
  Report Type: 
  Country: None (occurrence: None)
  Receive Date: 20110120
  Receipt Date: 20101018
  Transmission Date: 20110831
  Serious: No
  Sender: FDA-Public Use
  Company Number: US-BAYER-201023134BCC

PATIENT
  Sex: Male
  Weight: 77.273 kg

DRUGS (7)
  1. ALEVE [Suspect]
     Indication: INFLAMMATION
     Dosage: 440 MG, BID, BOTTLE COUNT 250S
     Route: 048
     Dates: start: 20100401
  2. ALEVE [Suspect]
     Indication: OEDEMA PERIPHERAL
  3. LEVOXYL [Concomitant]
  4. PRAVASTATIN [Concomitant]
  5. ALEVE [Suspect]
     Indication: BACK PAIN
  6. FOSINOPRIL SODIUM [Concomitant]
  7. ALEVE [Suspect]
     Indication: PAIN IN EXTREMITY

REACTIONS (1)
  - NO ADVERSE EVENT [None]
